FAERS Safety Report 4923650-2 (Version None)
Quarter: 2006Q1

REPORT INFORMATION
  Report Type: 
  Country: None (occurrence: None)
  Receive Date: 20060227
  Receipt Date: 20050412
  Transmission Date: 20060701
  Serious: Yes (Hospitalization, Disabling)
  Sender: FDA-Public Use
  Company Number: US-MERCK-0504USA02213

PATIENT
  Age: 58 Year
  Sex: Male
  Weight: 127 kg

DRUGS (5)
  1. VIOXX [Suspect]
     Indication: PAIN MANAGEMENT
     Route: 048
     Dates: start: 20011001, end: 20040401
  2. ZOLOFT [Concomitant]
     Indication: DEPRESSION
     Route: 065
     Dates: start: 20000101
  3. ASPIRIN [Concomitant]
     Route: 065
     Dates: start: 20000101
  4. METOPROLOL [Concomitant]
     Route: 065
     Dates: start: 20010101
  5. VASOTEC RPD [Concomitant]
     Route: 048
     Dates: start: 20000101, end: 20010101

REACTIONS (3)
  - DEPRESSION [None]
  - FACIAL NERVE DISORDER [None]
  - ISCHAEMIC STROKE [None]
